FAERS Safety Report 10780452 (Version 1)
Quarter: 2015Q1

REPORT INFORMATION
  Report Type: Spontaneous
  Country: US (occurrence: US)
  Receive Date: 20150210
  Receipt Date: 20150210
  Transmission Date: 20150721
  Serious: No
  Sender: FDA-Public Use
  Company Number: US-GLAXOSMITHKLINE-A1066462A

PATIENT

DRUGS (1)
  1. NICORETTE MINT [Suspect]
     Active Substance: NICOTINE
     Indication: EX-TOBACCO USER

REACTIONS (3)
  - Insomnia [Unknown]
  - Drug administration error [Unknown]
  - Dyspepsia [Unknown]

NARRATIVE: CASE EVENT DATE: 20140323
